FAERS Safety Report 7991545-6 (Version None)
Quarter: 2011Q4

REPORT INFORMATION
  Report Type: 
  Country: None (occurrence: None)
  Receive Date: 20111219
  Receipt Date: 20111216
  Transmission Date: 20120403
  Serious: Yes (Other)
  Sender: FDA-Public Use
  Company Number: US-ROCHE-1022814

PATIENT
  Sex: Female

DRUGS (3)
  1. ACCUTANE [Suspect]
     Indication: PRODUCT USED FOR UNKNOWN INDICATION
     Dates: start: 19970101
  2. ACCUTANE [Suspect]
     Dates: start: 19980101
  3. ACCUTANE [Suspect]
     Dates: start: 19990101

REACTIONS (2)
  - OESOPHAGITIS [None]
  - GASTROOESOPHAGEAL REFLUX DISEASE [None]
